FAERS Safety Report 15068019 (Version 2)
Quarter: 2018Q3

REPORT INFORMATION
  Report Type: Spontaneous
  Country: CH (occurrence: CH)
  Receive Date: 20180626
  Receipt Date: 20180713
  Transmission Date: 20181010
  Serious: Yes (Life-Threatening, Hospitalization, Other)
  Sender: FDA-Public Use
  Company Number: CH-SA-2018SA158915

PATIENT
  Age: 28 Year
  Sex: Female

DRUGS (14)
  1. PYRAZINAMIDE. [Suspect]
     Active Substance: PYRAZINAMIDE
     Indication: LYMPH NODE TUBERCULOSIS
     Dosage: UNK
  2. STREPTOMYCIN [Suspect]
     Active Substance: STREPTOMYCIN\STREPTOMYCIN SULFATE
  3. ISONIAZID. [Suspect]
     Active Substance: ISONIAZID
     Indication: LYMPH NODE TUBERCULOSIS
     Dosage: UNK
  4. ISONIAZID. [Suspect]
     Active Substance: ISONIAZID
     Dosage: UNK
  5. PYRAZINAMIDE. [Suspect]
     Active Substance: PYRAZINAMIDE
     Dosage: UNK
     Route: 048
  6. RIFAMPICIN [Suspect]
     Active Substance: RIFAMPIN
     Dosage: UNK
  7. ETHAMBUTOL [Suspect]
     Active Substance: ETHAMBUTOL HYDROCHLORIDE
     Dosage: UNK
  8. STREPTOMYCIN [Suspect]
     Active Substance: STREPTOMYCIN\STREPTOMYCIN SULFATE
     Dosage: UNK
  9. RIFAMPICIN [Suspect]
     Active Substance: RIFAMPIN
     Indication: LYMPH NODE TUBERCULOSIS
     Dosage: UNK
  10. PYRAZINAMIDE. [Suspect]
     Active Substance: PYRAZINAMIDE
     Dosage: UNK
  11. ETHAMBUTOL [Suspect]
     Active Substance: ETHAMBUTOL HYDROCHLORIDE
     Indication: LYMPH NODE TUBERCULOSIS
     Dosage: UNK
  12. RIFAMPICIN [Suspect]
     Active Substance: RIFAMPIN
     Dosage: 250 MG
     Route: 042
  13. RIFAMPICIN [Suspect]
     Active Substance: RIFAMPIN
     Dosage: UNK
  14. PARA?AMINOSALICYLIC ACID [Concomitant]
     Active Substance: AMINOSALICYLIC ACID

REACTIONS (19)
  - Adrenocortical insufficiency acute [Recovering/Resolving]
  - Confusional state [Recovered/Resolved]
  - Hepatitis fulminant [Recovered/Resolved]
  - Anaphylactic reaction [Recovering/Resolving]
  - Pruritus [Recovering/Resolving]
  - Hypotension [Recovering/Resolving]
  - Rash [Recovering/Resolving]
  - Diarrhoea [Recovered/Resolved]
  - Listless [Recovered/Resolved]
  - Acute hepatic failure [Recovered/Resolved]
  - Tachycardia [Recovered/Resolved]
  - Vomiting [Recovered/Resolved]
  - Hypoglycaemia [Recovered/Resolved]
  - Metabolic acidosis [Recovered/Resolved]
  - Blood pressure systolic decreased [Recovered/Resolved]
  - Adrenal insufficiency [Recovering/Resolving]
  - Shock [Recovering/Resolving]
  - Generalised erythema [Recovering/Resolving]
  - Nausea [Recovering/Resolving]
